FAERS Safety Report 7725769-X (Version None)
Quarter: 2011Q3

REPORT INFORMATION
  Report Type: 
  Country: None (occurrence: None)
  Receive Date: 20110902
  Receipt Date: 20110819
  Transmission Date: 20111222
  Serious: Yes (Hospitalization)
  Sender: FDA-Public Use
  Company Number: IE-UCBSA-035676

PATIENT
  Sex: Male
  Weight: 88 kg

DRUGS (15)
  1. NEUPRO [Suspect]
     Indication: PARKINSON'S DISEASE
     Route: 062
  2. COMBIVENT [Concomitant]
     Indication: ASTHMA
     Dosage: ONE NEB ONCE DAILY
  3. NEUPRO [Suspect]
     Dosage: DOSE REDUCED
     Route: 062
  4. SERTRALINE HYDROCHLORIDE [Concomitant]
     Indication: DEPRESSION
     Route: 048
  5. STALEVO 100 [Concomitant]
     Indication: PARKINSON'S DISEASE
     Dosage: 150/37.5/200 MG ONCE A DAY
  6. SPIRIVA RESPIMET [Concomitant]
     Indication: ASTHMA
     Dosage: 2 PUFFS ONCE DAILY
  7. PARALIEF [Concomitant]
     Indication: PAIN
     Dosage: 500 MG 2 QDS AS NEEDED
  8. RISEDRONATE SODIUM [Concomitant]
     Indication: OSTEOPOROSIS
     Route: 048
  9. FLUTICASONE PROPIONATE [Concomitant]
     Indication: ASTHMA
     Dosage: 500, ONE PUFF TWICE DAILY
  10. LERCANIDIPINE [Concomitant]
     Indication: HYPERTENSION
     Route: 048
  11. AZILECT [Concomitant]
     Indication: PARKINSON'S DISEASE
     Route: 048
  12. BUMETANIDE [Concomitant]
     Indication: FLUID RETENTION
     Dosage: 1 MG STRENGTH, ONE AND HALF DAILY
  13. PULMICORT [Concomitant]
     Indication: ASTHMA
     Dosage: 0.5 MG/2 ML, ONE NEB TWICE DAILY
  14. TRAMADOL HYDROCHLORIDE [Concomitant]
     Indication: PAIN
     Dosage: 50 MG TWICE DAILY AS NEEDED
  15. ESOMEPRAZOLE SODIUM [Concomitant]
     Indication: GASTROOESOPHAGEAL REFLUX DISEASE
     Route: 048

REACTIONS (3)
  - SOMNOLENCE [None]
  - COORDINATION ABNORMAL [None]
  - JAW DISORDER [None]
